FAERS Safety Report 5696530-5 (Version None)
Quarter: 2008Q2

REPORT INFORMATION
  Report Type: 
  Country: None (occurrence: None)
  Receive Date: 20080408
  Receipt Date: 20080404
  Transmission Date: 20081010
  Serious: Yes (Other)
  Sender: FDA-Public Use
  Company Number: GB-JNJFOC-20080303225

PATIENT
  Sex: Female
  Weight: 65 kg

DRUGS (8)
  1. RISPERDAL CONSTA [Suspect]
     Route: 030
  2. RISPERDAL CONSTA [Suspect]
     Indication: SCHIZOPHRENIA
     Route: 030
  3. AMISULPRIDE [Suspect]
     Route: 065
  4. AMISULPRIDE [Suspect]
     Route: 065
  5. AMISULPRIDE [Suspect]
     Route: 065
  6. AMISULPRIDE [Suspect]
     Route: 065
  7. AMISULPRIDE [Suspect]
     Indication: SCHIZOPHRENIA
     Route: 065
  8. DEPO-PROVERA [Concomitant]
     Indication: CONTRACEPTION
     Route: 030

REACTIONS (5)
  - AMENORRHOEA [None]
  - ELECTROCARDIOGRAM QT PROLONGED [None]
  - HYPERPROLACTINAEMIA [None]
  - NEUTROPHIL COUNT DECREASED [None]
  - PSYCHOTIC DISORDER [None]
